FAERS Safety Report 7601392-2 (Version None)
Quarter: 2011Q3

REPORT INFORMATION
  Report Type: 
  Country: None (occurrence: None)
  Receive Date: 20110711
  Receipt Date: 20110701
  Transmission Date: 20111222
  Serious: Yes (Other)
  Sender: FDA-Public Use
  Company Number: US-ASTRAZENECA-2011SE39600

PATIENT
  Sex: Female

DRUGS (3)
  1. PRISTIQ [Suspect]
     Route: 065
     Dates: start: 20110613
  2. SEROQUEL [Suspect]
     Route: 048
  3. PRISTIQ [Suspect]
     Route: 065

REACTIONS (3)
  - RENAL INJURY [None]
  - AGITATION [None]
  - CYSTITIS [None]
